FAERS Safety Report 4923491-6 (Version None)
Quarter: 2006Q1

REPORT INFORMATION
  Report Type: 
  Country: None (occurrence: None)
  Receive Date: 20060227
  Receipt Date: 20060216
  Transmission Date: 20060701
  Serious: Yes (Other)
  Sender: FDA-Public Use
  Company Number: PHEH2006US02229

PATIENT
  Age: 48 Year
  Sex: Female

DRUGS (12)
  1. ZOMETA [Suspect]
     Indication: BREAST CANCER METASTATIC
     Dosage: 4 MG, QMO
     Dates: end: 20060123
  2. LISINOPRIL [Concomitant]
  3. LEVOTHYROXINE SODIUM [Concomitant]
  4. CARBOPLATIN [Concomitant]
  5. TAXOL [Concomitant]
  6. NEULASTA [Concomitant]
  7. DIPHENHYDRAMINE [Concomitant]
  8. HALDOL [Concomitant]
  9. LORAZEPAM [Concomitant]
  10. NIFEDIPINE [Concomitant]
  11. PANTOPRAZOLE [Concomitant]
  12. AREMIS [Concomitant]

REACTIONS (2)
  - ANGIONEUROTIC OEDEMA [None]
  - PAROTITIS [None]
